FAERS Safety Report 7412118-X (Version None)
Quarter: 2011Q2

REPORT INFORMATION
  Report Type: 
  Country: None (occurrence: None)
  Receive Date: 20110413
  Receipt Date: 20110311
  Transmission Date: 20111010
  Serious: Yes (Hospitalization, Other)
  Sender: FDA-Public Use
  Company Number: US-BAYER-201033660NA

PATIENT
  Age: 22 Year
  Sex: Female
  Weight: 61.224 kg

DRUGS (26)
  1. ALLEGRA [Concomitant]
     Indication: RHINITIS ALLERGIC
  2. KEFLEX [Concomitant]
     Indication: RHINITIS ALLERGIC
  3. KEFLEX [Concomitant]
     Indication: HEADACHE
  4. FEXOFENADINE [Concomitant]
     Dosage: 180 MG, QD
     Route: 048
     Dates: start: 20051101
  5. YAZ [Suspect]
     Indication: CONTRACEPTION
     Dosage: UNK
     Route: 048
     Dates: start: 20060101
  6. YAZ [Suspect]
     Indication: MENSTRUAL CYCLE MANAGEMENT
  7. YASMIN [Suspect]
     Indication: MENSTRUAL CYCLE MANAGEMENT
  8. CYCLOBENZAPRINE [Concomitant]
     Dosage: ? TAB AT BEDTIME
     Dates: start: 20050201
  9. CLINDAMYCIN [Concomitant]
     Dosage: UNK
     Dates: start: 20030101, end: 20060101
  10. ALBUTEROL [Concomitant]
     Dosage: UNK
     Route: 048
     Dates: start: 20050501
  11. TRIAMCINOLONE ACETONIDE [Concomitant]
     Dosage: UNK UNK, PRN
     Dates: start: 20050101
  12. KETOCONAZOLE [Concomitant]
     Dosage: 200 MG, BID
     Route: 048
  13. IBUPROFEN [Concomitant]
     Dosage: UNK
     Dates: start: 20030101, end: 20050101
  14. METRONIDAZOLE [Concomitant]
     Dosage: 500 MG/2 TABS TWICE DAILY
     Route: 048
     Dates: start: 20040901
  15. YAZ [Suspect]
     Indication: PREMENSTRUAL SYNDROME
  16. YASMIN [Suspect]
     Indication: PREMENSTRUAL SYNDROME
  17. AMOXICILLIN [Concomitant]
     Dosage: UNK
     Dates: start: 20030101, end: 20060101
  18. YASMIN [Suspect]
     Indication: CONTRACEPTION
     Dosage: UNK
     Route: 048
     Dates: start: 20040101, end: 20060101
  19. ALLEGRA [Concomitant]
     Indication: SINUSITIS
  20. YAZ [Suspect]
     Indication: ACNE
  21. YASMIN [Suspect]
     Indication: ACNE
  22. ALBUTEROL [Concomitant]
     Dosage: UNK
     Dates: start: 20040101, end: 20060101
  23. ALLEGRA [Concomitant]
     Indication: HEADACHE
  24. KEFLEX [Concomitant]
     Indication: SINUSITIS
  25. ZITHROMAX [Concomitant]
     Dosage: 250MG TIMES 5 DAYS
     Route: 048
     Dates: start: 20041201
  26. FLUCONAZOLE [Concomitant]
     Dosage: 150 MG, UNK
     Route: 048
     Dates: start: 20031001, end: 20050701

REACTIONS (2)
  - PAIN [None]
  - DEEP VEIN THROMBOSIS [None]
